FAERS Safety Report 7010327-5 (Version None)
Quarter: 2010Q3

REPORT INFORMATION
  Report Type: 
  Country: None (occurrence: None)
  Receive Date: 20100923
  Receipt Date: 20100917
  Transmission Date: 20110219
  Serious: Yes (Other)
  Sender: FDA-Public Use
  Company Number: B0675080A

PATIENT
  Age: 35 Year
  Sex: Male
  Weight: 75 kg

DRUGS (2)
  1. AVAMYS [Suspect]
     Dosage: 27.5MCG PER DAY
     Route: 045
     Dates: start: 20100801, end: 20100910
  2. SERETIDE [Concomitant]

REACTIONS (2)
  - EPISTAXIS [None]
  - SINUS HEADACHE [None]
